FAERS Safety Report 16702082 (Version 1)
Quarter: 2019Q3

REPORT INFORMATION
  Report Type: Spontaneous
  Country: US (occurrence: US)
  Receive Date: 20190813
  Receipt Date: 20190813
  Transmission Date: 20191004
  Serious: No
  Sender: FDA-Public Use
  Company Number: None

PATIENT
  Sex: Female

DRUGS (1)
  1. OMEPRAZOLE DR CAPS 20MG [Suspect]
     Active Substance: OMEPRAZOLE

REACTIONS (1)
  - Treatment failure [None]
